FAERS Safety Report 22028664 (Version 1)
Quarter: 2023Q1

REPORT INFORMATION
  Report Type: Spontaneous
  Country: US (occurrence: US)
  Receive Date: 20230223
  Receipt Date: 20230223
  Transmission Date: 20230418
  Serious: Yes (Other)
  Sender: FDA-Public Use
  Company Number: US-INDIVIOR EUROPE LIMITED-INDV-138119-2023

PATIENT

DRUGS (2)
  1. SUBOXONE [Suspect]
     Active Substance: BUPRENORPHINE HYDROCHLORIDE\NALOXONE HYDROCHLORIDE
     Indication: Drug dependence
     Dosage: 16 MILLIGRAM, QD
     Route: 064
     Dates: start: 2013
  2. MORPHINE [Suspect]
     Active Substance: MORPHINE
     Indication: Drug withdrawal syndrome
     Dosage: UNK
     Route: 065
     Dates: start: 201401

REACTIONS (4)
  - Premature baby [Recovered/Resolved]
  - Drug withdrawal syndrome neonatal [Unknown]
  - Somnolence [Unknown]
  - Foetal exposure during pregnancy [Recovered/Resolved]

NARRATIVE: CASE EVENT DATE: 20130101
